FAERS Safety Report 16877686 (Version 1)
Quarter: 2019Q4

REPORT INFORMATION
  Report Type: Spontaneous
  Country: US (occurrence: US)
  Receive Date: 20191002
  Receipt Date: 20191002
  Transmission Date: 20200122
  Serious: Yes (Other)
  Sender: FDA-Public Use
  Company Number: US-COVIS PHARMA B.V.-2019COV00246

PATIENT
  Age: 26 Year
  Sex: Female

DRUGS (1)
  1. DIGOXIN. [Suspect]
     Active Substance: DIGOXIN
     Dosage: 250 ?G
     Route: 008

REACTIONS (5)
  - Meningitis chemical [Recovered/Resolved]
  - Status epilepticus [Recovered/Resolved]
  - Agitation [Recovered/Resolved]
  - Incorrect route of product administration [Recovered/Resolved]
  - Lethargy [Recovered/Resolved]
